FAERS Safety Report 10364128 (Version 1)
Quarter: 2014Q3

REPORT INFORMATION
  Report Type: Spontaneous
  Country: CA (occurrence: CA)
  Receive Date: 20140806
  Receipt Date: 20140806
  Transmission Date: 20150326
  Serious: Yes (Other)
  Sender: FDA-Public Use
  Company Number: CA-ROCHE-1444000

PATIENT
  Sex: Female

DRUGS (6)
  1. TRAMADOL [Concomitant]
     Active Substance: TRAMADOL
     Indication: PAIN
  2. COVERSYL [Concomitant]
     Active Substance: PERINDOPRIL
  3. TAXOTERE [Suspect]
     Active Substance: DOCETAXEL
     Indication: PRODUCT USED FOR UNKNOWN INDICATION
     Route: 065
     Dates: start: 201404
  4. HYDROMORPHONE [Concomitant]
     Active Substance: HYDROMORPHONE
  5. HERCEPTIN [Suspect]
     Active Substance: TRASTUZUMAB
     Indication: PRODUCT USED FOR UNKNOWN INDICATION
     Route: 042
     Dates: start: 2011
  6. CRESTOR [Concomitant]
     Active Substance: ROSUVASTATIN CALCIUM

REACTIONS (2)
  - Cardiac disorder [Recovering/Resolving]
  - Metastasis [Not Recovered/Not Resolved]

NARRATIVE: CASE EVENT DATE: 2013
